FAERS Safety Report 8352596-5 (Version None)
Quarter: 2012Q2

REPORT INFORMATION
  Report Type: 
  Country: None (occurrence: None)
  Receive Date: 20120511
  Receipt Date: 20120305
  Transmission Date: 20120825
  Serious: No
  Sender: FDA-Public Use
  Company Number: US-COVIDIEN/TYCO HEALTHCARE/MALLINCKRODT-T201201010

PATIENT
  Sex: Female
  Weight: 90.703 kg

DRUGS (9)
  1. THEOPHYLLINE [Concomitant]
     Indication: ASTHMA
     Dosage: 300 MG, BID
  2. ALTACE [Concomitant]
     Indication: BLOOD PRESSURE
     Dosage: 5 MG, QD
  3. LIPITOR [Concomitant]
     Indication: BLOOD CHOLESTEROL
     Dosage: 20 MG, QD
  4. MULTI-VITAMINS [Concomitant]
     Indication: SUPPLEMENTATION THERAPY
     Dosage: 1 TAB, QD
  5. EFFEXOR [Concomitant]
     Indication: ANXIETY
     Dosage: 75 MG, QD
  6. CYCLOBENZAPRINE [Concomitant]
     Indication: MUSCLE SPASMS
     Dosage: 10 MG, UNK
  7. CLONIDINE [Concomitant]
     Indication: BLOOD PRESSURE
     Dosage: 0.1 MG, QD AT BEDTIME
  8. FENTANYL-100 [Suspect]
     Indication: RHEUMATOID ARTHRITIS
     Dosage: 25 MCG/HR Q3 DAYS
     Route: 062
     Dates: start: 20120301
  9. PERCOCET [Concomitant]
     Indication: BREAKTHROUGH PAIN
     Dosage: UNK, TID

REACTIONS (2)
  - INAPPROPRIATE SCHEDULE OF DRUG ADMINISTRATION [None]
  - DRUG INEFFECTIVE [None]
